FAERS Safety Report 9666208 (Version 3)
Quarter: 2014Q1

REPORT INFORMATION
  Report Type: Spontaneous
  Country: US (occurrence: US)
  Receive Date: 20131104
  Receipt Date: 20140319
  Transmission Date: 20141002
  Serious: Yes (Hospitalization)
  Sender: FDA-Public Use
  Company Number: US-BIOGENIDEC-2013BI087839

PATIENT
  Sex: Female

DRUGS (4)
  1. TECFIDERA [Suspect]
     Indication: MULTIPLE SCLEROSIS
  2. NORVASC [Concomitant]
     Indication: HYPERTENSION
  3. LORATIDINE [Concomitant]
  4. PREDNISONE [Concomitant]

REACTIONS (2)
  - Psychotic disorder [Recovered/Resolved]
  - Multiple sclerosis [Unknown]
